FAERS Safety Report 13919577 (Version 3)
Quarter: 2020Q2

REPORT INFORMATION
  Report Type: Spontaneous
  Country: DE (occurrence: DE)
  Receive Date: 20170830
  Receipt Date: 20200529
  Transmission Date: 20200713
  Serious: Yes (Congenital Anomaly, Other)
  Sender: FDA-Public Use
  Company Number: DE-HETERO CORPORATE-HET2017DE00120

PATIENT
  Age: 9 Month
  Sex: Female
  Weight: 2 kg

DRUGS (4)
  1. LEVETIRACETAM. [Suspect]
     Active Substance: LEVETIRACETAM
     Indication: EPILEPSY
     Dosage: 1250 MG, Q.D.
     Route: 064
     Dates: start: 20160211, end: 20161003
  2. LEVETIRACETAM. [Suspect]
     Active Substance: LEVETIRACETAM
     Dosage: 1000 MG, BID
     Route: 064
     Dates: start: 20160109, end: 20160210
  3. OSPOLOT [Suspect]
     Active Substance: SULTHIAME
     Indication: EPILEPSY
     Dosage: 150 MG, BID
     Route: 064
     Dates: start: 20160109, end: 20161003
  4. BELLA HEXAL [Concomitant]
     Active Substance: CYPROTERONE ACETATE\ETHINYL ESTRADIOL
     Indication: CONTRACEPTION
     Dosage: 2 MG, Q.D.
     Route: 064
     Dates: start: 20160109, end: 20160204

REACTIONS (4)
  - Small for dates baby [Unknown]
  - Congenital cyst [Not Recovered/Not Resolved]
  - Foetal exposure during pregnancy [Unknown]
  - Low birth weight baby [Unknown]

NARRATIVE: CASE EVENT DATE: 201601
